FAERS Safety Report 9732881 (Version 1)
Quarter: 2013Q4

REPORT INFORMATION
  Report Type: Spontaneous
  Country: JP (occurrence: JP)
  Receive Date: 20131205
  Receipt Date: 20131205
  Transmission Date: 20140711
  Serious: Yes (Death)
  Sender: FDA-Public Use
  Company Number: JP-ALEXION PHARMACEUTICALS INC.-A201303908

PATIENT
  Age: 87 Year
  Sex: Male

DRUGS (1)
  1. SOLIRIS 300MG [Suspect]
     Indication: HAEMOLYTIC URAEMIC SYNDROME
     Dosage: 900 MG, QW
     Route: 042
     Dates: start: 20131016, end: 20131105

REACTIONS (3)
  - Pulmonary alveolar haemorrhage [Fatal]
  - Respiratory failure [Fatal]
  - Pneumonia [Fatal]
